FAERS Safety Report 11025498 (Version 6)
Quarter: 2015Q2

REPORT INFORMATION
  Report Type: Spontaneous
  Country: US (occurrence: US)
  Receive Date: 20150414
  Receipt Date: 20150526
  Transmission Date: 20150821
  Serious: Yes (Hospitalization, Other)
  Sender: FDA-Public Use
  Company Number: US-PFIZER INC-2015114774

PATIENT
  Age: 86 Year
  Sex: Female
  Weight: 68 kg

DRUGS (1)
  1. FLECTOR [Suspect]
     Active Substance: DICLOFENAC EPOLAMINE
     Indication: INTERVERTEBRAL DISC DEGENERATION
     Dosage: 1.3 AS NEEDED EVERY 12 HOURS

REACTIONS (8)
  - Product adhesion issue [Unknown]
  - Drug ineffective [Unknown]
  - Atrial fibrillation [Unknown]
  - Hypersensitivity [Unknown]
  - Dementia [Unknown]
  - Gait disturbance [Unknown]
  - Fear of falling [Unknown]
  - Cerebrovascular accident [Recovered/Resolved]

NARRATIVE: CASE EVENT DATE: 20150412
